FAERS Safety Report 4293880-4 (Version None)
Quarter: 2004Q1

REPORT INFORMATION
  Report Type: 
  Country: None (occurrence: None)
  Receive Date: 20040211
  Receipt Date: 20040129
  Transmission Date: 20041129
  Serious: Yes (Death)
  Sender: FDA-Public Use
  Company Number: 2004006204

PATIENT

DRUGS (1)
  1. CARDENALIN (DOXAZOSIN) [Suspect]
     Indication: HYPERTENSION
     Dosage: 2 MG ORAL
     Route: 048

REACTIONS (2)
  - CONDITION AGGRAVATED [None]
  - DIALYSIS [None]
